FAERS Safety Report 4591542-7 (Version None)
Quarter: 2005Q1

REPORT INFORMATION
  Report Type: 
  Country: None (occurrence: None)
  Receive Date: 20050222
  Receipt Date: 20050210
  Transmission Date: 20050727
  Serious: Yes (Hospitalization)
  Sender: FDA-Public Use
  Company Number: RENA-11266

PATIENT
  Age: 66 Year
  Sex: Female
  Weight: 41.5 kg

DRUGS (13)
  1. RENAGEL [Suspect]
     Indication: HYPERPHOSPHATAEMIA
     Dosage: 1.25 G DAILY PO
     Route: 048
     Dates: start: 20041201
  2. RENAGEL [Suspect]
     Indication: HYPERPHOSPHATAEMIA
     Dosage: 1.75 G DAILY PO
     Route: 048
     Dates: start: 20040811, end: 20041130
  3. RENAGEL [Suspect]
     Indication: HYPERPHOSPHATAEMIA
     Dosage: 1.25 G DAILY PO
     Route: 048
     Dates: start: 20040512, end: 20040810
  4. RENAGEL [Concomitant]
     Indication: HYPERPHOSPHATAEMIA
     Dosage: 0.25 G TID PO
     Route: 048
     Dates: start: 20040128, end: 20040511
  5. EPADEL [Suspect]
     Dates: end: 20041117
  6. CALTAN (CALCIUM CARBONATE) [Concomitant]
  7. GLAKAY (MENATETRENONE) [Concomitant]
  8. KALIMATE [Concomitant]
  9. ATELEC [Concomitant]
  10. MERISLON [Concomitant]
  11. PURSENNID [Concomitant]
  12. NERIPROCT [Concomitant]
  13. DAIOU [Concomitant]

REACTIONS (4)
  - ANAL FISSURE [None]
  - ANAL HAEMORRHAGE [None]
  - HAEMORRHOIDS [None]
  - MELAENA [None]
